FAERS Safety Report 5692918-7 (Version None)
Quarter: 2008Q2

REPORT INFORMATION
  Report Type: 
  Country: None (occurrence: None)
  Receive Date: 20080326
  Receipt Date: 20070730
  Transmission Date: 20081010
  Serious: Yes (Hospitalization)
  Sender: FDA-Public Use
  Company Number: 20070196

PATIENT
  Age: 15 Year
  Sex: Female
  Weight: 46.1 kg

DRUGS (1)
  1. DEXFERRUM [Suspect]
     Dosage: 25 MG INTRAVENOUS
     Route: 042
     Dates: start: 20070716

REACTIONS (1)
  - DYSPNOEA [None]
